FAERS Safety Report 8945455 (Version 2)
Quarter: 2013Q1

REPORT INFORMATION
  Report Type: Spontaneous
  Country: US (occurrence: US)
  Receive Date: 20121204
  Receipt Date: 20130305
  Transmission Date: 20140127
  Serious: No
  Sender: FDA-Public Use
  Company Number: US-AMGEN-USASP2012074986

PATIENT
  Age: 71 Year
  Sex: Female

DRUGS (2)
  1. ENBREL [Suspect]
     Indication: RHEUMATOID ARTHRITIS
     Dosage: 50MG,WEEKLY
     Route: 058
     Dates: start: 20010101, end: 2013
  2. LEFLUNOMIDE [Concomitant]
     Dosage: 20 MG, UNK

REACTIONS (2)
  - Visual acuity reduced [Not Recovered/Not Resolved]
  - Urinary tract infection [Unknown]
